FAERS Safety Report 10459478 (Version 2)
Quarter: 2014Q3

REPORT INFORMATION
  Report Type: Spontaneous
  Country: IL (occurrence: IL)
  Receive Date: 20140917
  Receipt Date: 20140917
  Transmission Date: 20150326
  Serious: Yes (Hospitalization)
  Sender: FDA-Public Use
  Company Number: IL-BAYER-2014-126500

PATIENT
  Age: 82 Year
  Sex: Male

DRUGS (9)
  1. CARTIA XT [Concomitant]
     Active Substance: DILTIAZEM HYDROCHLORIDE
  2. CONCOR [Concomitant]
     Active Substance: BISOPROLOL FUMARATE
  3. CLEXANE [Concomitant]
     Active Substance: ENOXAPARIN SODIUM
  4. STIVARGA [Suspect]
     Active Substance: REGORAFENIB
     Indication: COLON CANCER
     Dosage: FULL DOSE
     Dates: start: 201407
  5. IMOVANE [Concomitant]
     Active Substance: ZOPICLONE
  6. AVODART [Concomitant]
     Active Substance: DUTASTERIDE
  7. TRITACE [Concomitant]
     Active Substance: RAMIPRIL
  8. PLAVIX [Concomitant]
     Active Substance: CLOPIDOGREL BISULFATE
  9. XATRAL [Concomitant]
     Active Substance: ALFUZOSIN

REACTIONS (2)
  - Pneumonia [None]
  - Hypertension [None]

NARRATIVE: CASE EVENT DATE: 2014
